FAERS Safety Report 13503434 (Version 1)
Quarter: 2017Q2

REPORT INFORMATION
  Report Type: Spontaneous
  Country: US (occurrence: US)
  Receive Date: 20170502
  Receipt Date: 20170502
  Transmission Date: 20170830
  Serious: Yes (Hospitalization)
  Sender: FDA-Public Use
  Company Number: None

PATIENT
  Age: 49 Year
  Sex: Male

DRUGS (9)
  1. AMLODIPINE [Concomitant]
     Active Substance: AMLODIPINE BESYLATE
  2. PRILOSEC [Concomitant]
     Active Substance: OMEPRAZOLE MAGNESIUM
  3. VOTRIENT [Suspect]
     Active Substance: PAZOPANIB HYDROCHLORIDE
     Indication: RENAL CANCER
     Route: 048
     Dates: start: 20170209
  4. CELEBREX [Concomitant]
     Active Substance: CELECOXIB
  5. ALLOPURINOL. [Concomitant]
     Active Substance: ALLOPURINOL
  6. TUMS EX [Concomitant]
     Active Substance: CALCIUM CARBONATE
  7. ENOXAPARIN [Concomitant]
     Active Substance: ENOXAPARIN
  8. ONDANSETRON [Concomitant]
     Active Substance: ONDANSETRON
  9. WARFARIN [Concomitant]
     Active Substance: WARFARIN

REACTIONS (2)
  - Nausea [None]
  - Diarrhoea [None]

NARRATIVE: CASE EVENT DATE: 201704
